FAERS Safety Report 24688882 (Version 1)
Quarter: 2024Q4

REPORT INFORMATION
  Report Type: Report from Study
  Country: US (occurrence: US)
  Receive Date: 20241203
  Receipt Date: 20241203
  Transmission Date: 20250114
  Serious: Yes (Hospitalization)
  Sender: CHEPLAPHARM
  Company Number: US-CHEPLA-2024014987

PATIENT
  Age: 47 Year
  Sex: Male

DRUGS (6)
  1. OLANZAPINE [Suspect]
     Active Substance: OLANZAPINE
     Indication: Agitation
     Route: 042
  2. MIDAZOLAM [Suspect]
     Active Substance: MIDAZOLAM
     Route: 042
  3. NALOXONE [Suspect]
     Active Substance: NALOXONE
     Route: 042
  4. COCAINE [Suspect]
     Active Substance: COCAINE
  5. AMPHETAMINE [Suspect]
     Active Substance: AMPHETAMINE
  6. FENTANYL [Suspect]
     Active Substance: FENTANYL

REACTIONS (2)
  - Apnoea [Unknown]
  - Off label use [Unknown]
